FAERS Safety Report 6833653-9 (Version None)
Quarter: 2010Q3

REPORT INFORMATION
  Report Type: 
  Country: None (occurrence: None)
  Receive Date: 20100712
  Receipt Date: 20070328
  Transmission Date: 20110219
  Serious: No
  Sender: FDA-Public Use
  Company Number: US-PFIZER INC-2007026314

PATIENT
  Sex: Male
  Weight: 73.48 kg

DRUGS (3)
  1. CHANTIX [Suspect]
     Indication: DRUG WITHDRAWAL SYNDROME
     Dates: start: 20070322
  2. ANTIHYPERTENSIVES [Concomitant]
     Indication: HYPERTENSION
  3. INSULIN [Concomitant]
     Indication: DIABETES MELLITUS

REACTIONS (5)
  - APATHY [None]
  - DEPRESSION [None]
  - HEADACHE [None]
  - SLEEP DISORDER [None]
  - SLUGGISHNESS [None]
